FAERS Safety Report 9749061 (Version 1)
Quarter: 2013Q4

REPORT INFORMATION
  Report Type: Spontaneous
  Country: US (occurrence: US)
  Receive Date: 20131212
  Receipt Date: 20131212
  Transmission Date: 20140711
  Serious: No
  Sender: FDA-Public Use
  Company Number: US-TEVA-390797USA

PATIENT
  Age: 46 Year
  Sex: Female
  Weight: 62.2 kg

DRUGS (2)
  1. PARAGARD 380A [Suspect]
     Indication: CONTRACEPTION
     Route: 015
     Dates: start: 20130116, end: 20130226
  2. ACYCLOVIR [Concomitant]
     Indication: HERPES SIMPLEX

REACTIONS (5)
  - Back pain [Recovered/Resolved]
  - Alopecia [Recovered/Resolved]
  - Premenstrual syndrome [Recovered/Resolved]
  - Emotional disorder [Recovered/Resolved]
  - Pelvic pain [Recovered/Resolved]
